FAERS Safety Report 4819836-8 (Version None)
Quarter: 2005Q4

REPORT INFORMATION
  Report Type: 
  Country: None (occurrence: None)
  Receive Date: 20051102
  Receipt Date: 20051014
  Transmission Date: 20060501
  Serious: Yes (Hospitalization, Other)
  Sender: FDA-Public Use
  Company Number: DEU-2005-0001608

PATIENT
  Age: 60 Year
  Sex: Female
  Weight: 105 kg

DRUGS (10)
  1. OXYCODONE AND NALOXONE [Suspect]
     Indication: BACK PAIN
     Dosage: 20 MG, DAILY, ORAL
     Route: 048
     Dates: start: 20050503, end: 20051013
  2. OXYCODONE HCL [Suspect]
     Indication: BACK PAIN
     Dosage: 5 MG, PRN, ORAL
     Route: 048
     Dates: start: 20050413
  3. ASPIRIN [Concomitant]
  4. METOPROLOL SUCCINATE [Concomitant]
  5. RAMIPRIL [Concomitant]
  6. INSULIN [Concomitant]
  7. TRAMADOL HCL [Concomitant]
  8. OMEPRAZOLE [Concomitant]
  9. KEIMAX (CEFTIBUTEN) [Concomitant]
  10. ISCOVER (CLOPIDOGREL SULFATE) [Concomitant]

REACTIONS (11)
  - ANGINA UNSTABLE [None]
  - BLOOD PRESSURE DECREASED [None]
  - BLOOD PRESSURE SYSTOLIC INCREASED [None]
  - CHEST DISCOMFORT [None]
  - CONDITION AGGRAVATED [None]
  - CORONARY ARTERY DISEASE [None]
  - CORONARY ARTERY STENOSIS [None]
  - ELECTROCARDIOGRAM ST SEGMENT DEPRESSION [None]
  - ELECTROCARDIOGRAM ST SEGMENT ELEVATION [None]
  - MYOCARDIAL ISCHAEMIA [None]
  - REFUSAL OF TREATMENT BY PATIENT [None]
